FAERS Safety Report 24705935 (Version 3)
Quarter: 2025Q2

REPORT INFORMATION
  Report Type: Report from Study
  Country: US (occurrence: US)
  Receive Date: 20241206
  Receipt Date: 20250404
  Transmission Date: 20250717
  Serious: Yes (Other)
  Sender: PFIZER
  Company Number: US-PFIZER INC-202400272800

PATIENT
  Age: 67 Year
  Sex: Female

DRUGS (10)
  1. TUKYSA [Suspect]
     Active Substance: TUCATINIB
     Indication: Breast cancer female
     Dosage: 300 MG, 2X/DAY
     Route: 048
     Dates: start: 20241001
  2. TUKYSA [Suspect]
     Active Substance: TUCATINIB
     Dosage: 300 MG, 2X/DAY
     Route: 048
  3. TUKYSA [Suspect]
     Active Substance: TUCATINIB
     Dosage: 300 MG BY MOUTH TWICE DAILY
     Route: 048
     Dates: start: 20241217
  4. LOPERAMIDE [Suspect]
     Active Substance: LOPERAMIDE
  5. CAPECITABINE [Concomitant]
     Active Substance: CAPECITABINE
     Dates: start: 20240924
  6. HERCEPTIN [Concomitant]
     Active Substance: TRASTUZUMAB
  7. METOPROLOL [Concomitant]
     Active Substance: METOPROLOL
  8. POTASSIUM [Concomitant]
     Active Substance: POTASSIUM
  9. VITAMIN B12 [Concomitant]
     Active Substance: CYANOCOBALAMIN
  10. VITAMIN D3 [Concomitant]
     Active Substance: CHOLECALCIFEROL

REACTIONS (8)
  - Neuropathy peripheral [Not Recovered/Not Resolved]
  - Ascites [Unknown]
  - Diarrhoea [Recovering/Resolving]
  - Oedema peripheral [Not Recovered/Not Resolved]
  - Skin discolouration [Unknown]
  - Dry skin [Unknown]
  - Constipation [Not Recovered/Not Resolved]
  - Product dose omission issue [Unknown]
